FAERS Safety Report 17890846 (Version 2)
Quarter: 2020Q3

REPORT INFORMATION
  Report Type: Spontaneous
  Country: US (occurrence: US)
  Receive Date: 20200612
  Receipt Date: 20200728
  Transmission Date: 20201103
  Serious: No
  Sender: FDA-Public Use
  Company Number: US-BEH-2020118176

PATIENT
  Sex: Female

DRUGS (1)
  1. HIZENTRA [Suspect]
     Active Substance: HUMAN IMMUNOGLOBULIN G
     Indication: PSORIASIS
     Dosage: 10 GRAM, QW
     Route: 058
     Dates: start: 20200529

REACTIONS (7)
  - Weight increased [Unknown]
  - Nausea [Unknown]
  - No adverse event [Unknown]
  - Product use in unapproved indication [Unknown]
  - Pain [Unknown]
  - Chest discomfort [Unknown]
  - Headache [Unknown]
